FAERS Safety Report 8106687-4 (Version None)
Quarter: 2012Q1

REPORT INFORMATION
  Report Type: 
  Country: None (occurrence: None)
  Receive Date: 20120130
  Receipt Date: 20120124
  Transmission Date: 20120608
  Serious: Yes (Hospitalization)
  Sender: FDA-Public Use
  Company Number: 2011SP035858

PATIENT
  Age: 21 Year
  Sex: Female
  Weight: 68.0396 kg

DRUGS (1)
  1. NUVARING [Suspect]
     Indication: CONTRACEPTION
     Dosage: VAG
     Route: 067
     Dates: start: 20070514, end: 20070806

REACTIONS (9)
  - PREGNANCY [None]
  - HAEMOGLOBINURIA [None]
  - HAEMOGLOBINAEMIA [None]
  - MICROCYTIC ANAEMIA [None]
  - MATERNAL EXPOSURE TIMING UNSPECIFIED [None]
  - HEPATIC ENZYME INCREASED [None]
  - DEEP VEIN THROMBOSIS [None]
  - ABORTION THREATENED [None]
  - HYPERCHROMIC ANAEMIA [None]
